FAERS Safety Report 17528245 (Version 1)
Quarter: 2020Q1

REPORT INFORMATION
  Report Type: Spontaneous
  Country: US (occurrence: US)
  Receive Date: 20200311
  Receipt Date: 20200311
  Transmission Date: 20200409
  Serious: Yes (Hospitalization, Other)
  Sender: FDA-Public Use
  Company Number: US-009507513-2003USA001805

PATIENT
  Sex: Female

DRUGS (1)
  1. TICE BCG [Suspect]
     Active Substance: BACILLUS CALMETTE-GUERIN SUBSTRAIN TICE LIVE ANTIGEN
     Indication: NEOPLASM MALIGNANT

REACTIONS (3)
  - Recurrent cancer [Unknown]
  - Adverse drug reaction [Unknown]
  - Product dose omission [Unknown]

NARRATIVE: CASE EVENT DATE: 201902
